FAERS Safety Report 7859967-1 (Version None)
Quarter: 2011Q4

REPORT INFORMATION
  Report Type: 
  Country: None (occurrence: None)
  Receive Date: 20111026
  Receipt Date: 20111026
  Transmission Date: 20120403
  Serious: No
  Sender: FDA-Public Use
  Company Number: None

PATIENT
  Age: 54 Year
  Sex: Female

DRUGS (1)
  1. HEAD AND SHOULDERS SHAMPOO [Suspect]
     Dates: start: 20111011

REACTIONS (4)
  - EYE SWELLING [None]
  - EYE PAIN [None]
  - VISION BLURRED [None]
  - EYE IRRITATION [None]
